FAERS Safety Report 25511251 (Version 1)
Quarter: 2025Q3

REPORT INFORMATION
  Report Type: Spontaneous
  Country: US (occurrence: US)
  Receive Date: 20250703
  Receipt Date: 20250703
  Transmission Date: 20251021
  Serious: Yes (Other)
  Sender: MAYNE
  Company Number: US-DUCHESNAY INC-2025MYN000380

PATIENT

DRUGS (1)
  1. ANNOVERA [Suspect]
     Active Substance: ETHINYL ESTRADIOL\SEGESTERONE ACETATE
     Indication: Heavy menstrual bleeding
     Route: 067

REACTIONS (3)
  - Surgery [Unknown]
  - Product quality issue [Unknown]
  - Off label use [Unknown]
